FAERS Safety Report 12060675 (Version 1)
Quarter: 2016Q1

REPORT INFORMATION
  Report Type: Spontaneous
  Country: US (occurrence: US)
  Receive Date: 20160210
  Receipt Date: 20160210
  Transmission Date: 20160526
  Serious: Yes (Other)
  Sender: FDA-Public Use
  Company Number: US-SA-2016SA023229

PATIENT
  Sex: Male

DRUGS (3)
  1. LANTUS [Suspect]
     Active Substance: INSULIN GLARGINE
     Indication: DIABETES MELLITUS
     Dosage: DOSE:100 UNIT(S)
     Route: 065
     Dates: start: 2006
  2. PRALUENT [Concomitant]
     Active Substance: ALIROCUMAB
     Dosage: HIS FIRST TWO DOSES WERE 150MG, GIVEN EVERY TWO WEEKS STARTING 08-JAN-2016
     Route: 065
     Dates: start: 20160108
  3. ALIROCUMAB PREFILLED PEN [Concomitant]
     Active Substance: ALIROCUMAB
     Dates: start: 20160108

REACTIONS (5)
  - Blood creatine phosphokinase increased [Unknown]
  - Rhabdomyolysis [Unknown]
  - Myalgia [Unknown]
  - Muscle spasms [Unknown]
  - Incorrect dose administered [Unknown]
